FAERS Safety Report 5996043-7 (Version None)
Quarter: 2008Q4

REPORT INFORMATION
  Report Type: 
  Country: None (occurrence: None)
  Receive Date: 20081212
  Receipt Date: 20081008
  Transmission Date: 20090506
  Serious: No
  Sender: FDA-Public Use
  Company Number: US-ABBOTT-08P-163-0480584-00

PATIENT
  Sex: Female
  Weight: 74.002 kg

DRUGS (4)
  1. HUMIRA [Suspect]
     Indication: CROHN'S DISEASE
     Route: 058
     Dates: start: 20080101
  2. CELECOXIB [Concomitant]
     Indication: ARTHRITIS
     Route: 048
     Dates: start: 20060101
  3. TOLTERODINE TARTRATE [Concomitant]
     Indication: URINARY INCONTINENCE
     Route: 048
     Dates: start: 20000101
  4. MESALAMINE [Concomitant]
     Indication: CROHN'S DISEASE
     Route: 048
     Dates: start: 20080801

REACTIONS (4)
  - ARTHRALGIA [None]
  - DYSPNOEA [None]
  - INJECTION SITE IRRITATION [None]
  - NAUSEA [None]
